FAERS Safety Report 20142278 (Version 1)
Quarter: 2021Q4

REPORT INFORMATION
  Report Type: Spontaneous
  Country: US (occurrence: None)
  Receive Date: 20211202
  Receipt Date: 20211202
  Transmission Date: 20220304
  Serious: No
  Sender: FDA-Public Use
  Company Number: 2021A848507

PATIENT
  Sex: Female
  Weight: 61.2 kg

DRUGS (2)
  1. CALQUENCE [Suspect]
     Active Substance: ACALABRUTINIB
     Indication: Chronic lymphocytic leukaemia
     Route: 048
     Dates: start: 202104
  2. IMBRUVICA [Concomitant]
     Active Substance: IBRUTINIB
     Dates: start: 202002

REACTIONS (1)
  - White blood cell count abnormal [Unknown]
